FAERS Safety Report 24946356 (Version 2)
Quarter: 2025Q1

REPORT INFORMATION
  Report Type: Spontaneous
  Country: IN (occurrence: IN)
  Receive Date: 20250210
  Receipt Date: 20250213
  Transmission Date: 20250409
  Serious: Yes (Other)
  Sender: NOVARTIS
  Company Number: IN-SANDOZ-SDZ2025IN006693

PATIENT
  Sex: Female

DRUGS (4)
  1. TACROLIMUS [Suspect]
     Active Substance: TACROLIMUS
     Indication: Renal transplant
     Dosage: 5 MG, QD (2.5 MG, BID)
     Route: 048
  2. TACROLIMUS [Suspect]
     Active Substance: TACROLIMUS
     Dosage: 5 MG, QD (2.5 MG, BID)
     Route: 048
  3. MYFORTIC [Suspect]
     Active Substance: MYCOPHENOLATE SODIUM
     Indication: Renal transplant
     Dosage: 1080 MG, QD (360 MG, TID)
     Route: 048
  4. MYFORTIC [Suspect]
     Active Substance: MYCOPHENOLATE SODIUM
     Dosage: 1080 MG, QD (360 MG, TID)
     Route: 048

REACTIONS (12)
  - Cardiac failure acute [Unknown]
  - Pneumonia klebsiella [Unknown]
  - Lower respiratory tract infection [Unknown]
  - Heart failure with reduced ejection fraction [Unknown]
  - Toxicity to various agents [Unknown]
  - Product prescribing issue [Unknown]
  - Electrolyte imbalance [Unknown]
  - Hypoalbuminaemia [Unknown]
  - Infection [Unknown]
  - Blood test abnormal [Unknown]
  - Klebsiella infection [Unknown]
  - Off label use [Unknown]
